FAERS Safety Report 8115888-0 (Version None)
Quarter: 2012Q1

REPORT INFORMATION
  Report Type: 
  Country: None (occurrence: None)
  Receive Date: 20120206
  Receipt Date: 20120130
  Transmission Date: 20120608
  Serious: Yes (Death, Hospitalization)
  Sender: FDA-Public Use
  Company Number: SE-BRISTOL-MYERS SQUIBB COMPANY-16374860

PATIENT
  Age: 62 Year
  Sex: Male

DRUGS (3)
  1. NOZINAN [Concomitant]
     Dosage: TAKEN IN THE EVENING
  2. NITRAZEPAM [Concomitant]
     Dosage: TAKEN IN THE EVENING
  3. ABILIFY [Suspect]
     Dosage: NO OF DOSES:03

REACTIONS (9)
  - EMBOLISM [None]
  - ATRIAL FIBRILLATION [None]
  - DEEP VEIN THROMBOSIS [None]
  - DEATH [None]
  - MANIA [None]
  - CARDIAC FAILURE CONGESTIVE [None]
  - BLOOD SODIUM DECREASED [None]
  - HAEMATEMESIS [None]
  - BLOOD POTASSIUM INCREASED [None]
